FAERS Safety Report 21685302 (Version 2)
Quarter: 2022Q4

REPORT INFORMATION
  Report Type: Spontaneous
  Country: US (occurrence: US)
  Receive Date: 20221206
  Receipt Date: 20221209
  Transmission Date: 20230112
  Serious: No
  Sender: FDA-Public Use
  Company Number: US-SANOFI-01389805

PATIENT
  Age: 48 Year
  Sex: Female

DRUGS (1)
  1. DUPIXENT [Suspect]
     Active Substance: DUPILUMAB
     Indication: Nasal polyps
     Dosage: 300 MG, QOW
     Route: 058
     Dates: start: 20220919

REACTIONS (10)
  - Tinnitus [Not Recovered/Not Resolved]
  - Ear swelling [Not Recovered/Not Resolved]
  - Ocular discomfort [Not Recovered/Not Resolved]
  - Myalgia [Not Recovered/Not Resolved]
  - Foreign body sensation in eyes [Not Recovered/Not Resolved]
  - Asthenopia [Not Recovered/Not Resolved]
  - Ear discomfort [Not Recovered/Not Resolved]
  - Arthritis [Not Recovered/Not Resolved]
  - Dry eye [Not Recovered/Not Resolved]
  - Rash [Not Recovered/Not Resolved]
